FAERS Safety Report 23241366 (Version 1)
Quarter: 2023Q4

REPORT INFORMATION
  Report Type: Spontaneous
  Country: CN (occurrence: CN)
  Receive Date: 20231129
  Receipt Date: 20231129
  Transmission Date: 20240110
  Serious: Yes (Hospitalization)
  Sender: FDA-Public Use
  Company Number: CN-PFIZER INC-PV202300191086

PATIENT
  Age: 73 Year
  Sex: Male
  Weight: 60 kg

DRUGS (3)
  1. EPIRUBICIN HYDROCHLORIDE [Suspect]
     Active Substance: EPIRUBICIN HYDROCHLORIDE
     Indication: Hepatocellular carcinoma
     Dosage: 30 MG, 1X/DAY
     Dates: start: 20231005, end: 20231005
  2. LOBAPLATIN [Suspect]
     Active Substance: LOBAPLATIN
     Indication: Hepatocellular carcinoma
     Dosage: 50 MG, 1X/DAY
     Dates: start: 20231005, end: 20231005
  3. IODINE [Suspect]
     Active Substance: IODINE
     Indication: Hepatocellular carcinoma
     Dosage: 5 ML, 1X/DAY
     Dates: start: 20231005, end: 20231005

REACTIONS (1)
  - Drug eruption [Recovering/Resolving]

NARRATIVE: CASE EVENT DATE: 20231015
